FAERS Safety Report 8432212-4 (Version None)
Quarter: 2012Q2

REPORT INFORMATION
  Report Type: 
  Country: None (occurrence: None)
  Receive Date: 20120613
  Receipt Date: 20120608
  Transmission Date: 20120825
  Serious: Yes (Death)
  Sender: FDA-Public Use
  Company Number: AT-BRISTOL-MYERS SQUIBB COMPANY-16673816

PATIENT
  Age: 22 Year
  Sex: Male
  Weight: 127 kg

DRUGS (10)
  1. LECICARBON [Concomitant]
  2. ASPIRIN [Concomitant]
  3. LORAZEPAM [Concomitant]
  4. NOZINAN [Suspect]
     Dates: start: 20111002, end: 20111006
  5. FERRETAB [Concomitant]
  6. ABILIFY [Suspect]
     Dates: start: 20110920, end: 20110928
  7. MESALAMINE [Concomitant]
  8. CYMBALTA [Concomitant]
  9. SEROQUEL [Concomitant]
  10. EUTHYROX [Concomitant]

REACTIONS (1)
  - LEFT VENTRICULAR FAILURE [None]
